FAERS Safety Report 16774926 (Version 1)
Quarter: 2019Q3

REPORT INFORMATION
  Report Type: Report from Study
  Country: IT (occurrence: IT)
  Receive Date: 20190905
  Receipt Date: 20190905
  Transmission Date: 20191005
  Serious: Yes (Hospitalization)
  Sender: FDA-Public Use
  Company Number: IT-TEVA-2019-IT-1101348

PATIENT
  Age: 54 Year
  Sex: Male

DRUGS (2)
  1. ZOLPIDEM TARTATE [Suspect]
     Active Substance: ZOLPIDEM TARTRATE
     Indication: DRUG ABUSE
     Dosage: 30 MG
     Route: 048
     Dates: start: 20190607, end: 20190607
  2. BROTIZOLAM [Suspect]
     Active Substance: BROTIZOLAM
     Indication: DRUG ABUSE
     Dosage: 1 MG
     Route: 048
     Dates: start: 20190607, end: 20190607

REACTIONS (6)
  - Nausea [Recovered/Resolved]
  - Hypokinesia [Recovered/Resolved]
  - Bradyphrenia [Recovered/Resolved]
  - Sopor [Recovered/Resolved]
  - Vomiting [Recovered/Resolved]
  - Drug abuse [Recovered/Resolved]

NARRATIVE: CASE EVENT DATE: 20190607
